FAERS Safety Report 26104450 (Version 1)
Quarter: 2025Q4

REPORT INFORMATION
  Report Type: Spontaneous
  Country: US (occurrence: US)
  Receive Date: 20251130
  Receipt Date: 20251130
  Transmission Date: 20260118
  Serious: Yes (Other)
  Sender: CENTRAL ADMIXTURE PHARMACY SERVICES, INC.
  Company Number: US-Central Admixture Pharmacy Services, Inc.-2189501

PATIENT
  Age: 1 Day
  Sex: Male

DRUGS (1)
  1. AMINO ACIDS\DEXTROSE [Suspect]
     Active Substance: AMINO ACIDS\DEXTROSE
     Indication: Parenteral nutrition
     Dates: start: 20251116, end: 20251116

REACTIONS (1)
  - Hyperglycaemia [Recovered/Resolved]

NARRATIVE: CASE EVENT DATE: 20251116
